FAERS Safety Report 5197848-5 (Version None)
Quarter: 2006Q4

REPORT INFORMATION
  Report Type: 
  Country: None (occurrence: None)
  Receive Date: 20061228
  Receipt Date: 20061212
  Transmission Date: 20070319
  Serious: Yes (Other)
  Sender: FDA-Public Use
  Company Number: 2006BI018356

PATIENT
  Age: 78 Year
  Sex: Female

DRUGS (2)
  1. NATALIZUMAB [Suspect]
     Indication: MULTIPLE SCLEROSIS
     Dosage: IV
     Route: 042
     Dates: start: 20050101, end: 20050101
  2. NATALIZUMAB [Suspect]
     Indication: MULTIPLE SCLEROSIS
     Dosage: IV
     Route: 042
     Dates: start: 20061001

REACTIONS (6)
  - ASTHENIA [None]
  - BRADYCARDIA [None]
  - HYPOTENSION [None]
  - INFUSION RELATED REACTION [None]
  - NAUSEA [None]
  - PALLOR [None]
